FAERS Safety Report 6725374-8 (Version None)
Quarter: 2010Q2

REPORT INFORMATION
  Report Type: 
  Country: None (occurrence: None)
  Receive Date: 20100512
  Receipt Date: 20100504
  Transmission Date: 20101027
  Serious: Yes (Death, Hospitalization)
  Sender: FDA-Public Use
  Company Number: WAES 0811FRA00029

PATIENT
  Age: 67 Year
  Sex: Male

DRUGS (22)
  1. CAP VORINOSTAT [Suspect]
     Indication: NON-SMALL CELL LUNG CANCER
     Dosage: 400 MG/DAILY PO ; 400 MG/DAILY PO ; 400 MG/DAILY PO ; 400 MG/DAILY PO
     Route: 048
     Dates: start: 20081014, end: 20081023
  2. CAP VORINOSTAT [Suspect]
     Indication: NON-SMALL CELL LUNG CANCER
     Dosage: 400 MG/DAILY PO ; 400 MG/DAILY PO ; 400 MG/DAILY PO ; 400 MG/DAILY PO
     Route: 048
     Dates: start: 20081104, end: 20081111
  3. CAP VORINOSTAT [Suspect]
     Indication: NON-SMALL CELL LUNG CANCER
     Dosage: 400 MG/DAILY PO ; 400 MG/DAILY PO ; 400 MG/DAILY PO ; 400 MG/DAILY PO
     Route: 048
     Dates: start: 20081125, end: 20081127
  4. CAP VORINOSTAT [Suspect]
     Indication: NON-SMALL CELL LUNG CANCER
     Dosage: 400 MG/DAILY PO ; 400 MG/DAILY PO ; 400 MG/DAILY PO ; 400 MG/DAILY PO
     Route: 048
     Dates: start: 20081209, end: 20081211
  5. GEMCITABINE [Suspect]
     Indication: NON-SMALL CELL LUNG CANCER
     Dosage: 1250 MG/M2/D IV ; 1250 MG/M2/D IV ; 1250 MG/M2/D IV ; 75 MG/M2/D IV
     Route: 042
     Dates: start: 20081016, end: 20081016
  6. GEMCITABINE [Suspect]
     Indication: NON-SMALL CELL LUNG CANCER
     Dosage: 1250 MG/M2/D IV ; 1250 MG/M2/D IV ; 1250 MG/M2/D IV ; 75 MG/M2/D IV
     Route: 042
     Dates: start: 20081023, end: 20081023
  7. GEMCITABINE [Suspect]
     Indication: NON-SMALL CELL LUNG CANCER
     Dosage: 1250 MG/M2/D IV ; 1250 MG/M2/D IV ; 1250 MG/M2/D IV ; 75 MG/M2/D IV
     Route: 042
     Dates: start: 20081106, end: 20081106
  8. GEMCITABINE [Suspect]
     Indication: NON-SMALL CELL LUNG CANCER
     Dosage: 1250 MG/M2/D IV ; 1250 MG/M2/D IV ; 1250 MG/M2/D IV ; 75 MG/M2/D IV
     Route: 042
     Dates: start: 20081113, end: 20081113
  9. CISPLATIN [Suspect]
     Indication: NON-SMALL CELL LUNG CANCER
     Dosage: 75 MG/M2/D IV ; 75 MG/M2/D IV
     Route: 042
     Dates: start: 20081016, end: 20081016
  10. CISPLATIN [Suspect]
     Indication: NON-SMALL CELL LUNG CANCER
     Dosage: 75 MG/M2/D IV ; 75 MG/M2/D IV
     Route: 042
     Dates: start: 20081106, end: 20081106
  11. EMEND [Concomitant]
  12. BROMAZEPAM [Concomitant]
  13. CLONAZEPAM [Concomitant]
  14. FENTANYL [Concomitant]
  15. FLUVASTATIN SODIUM [Concomitant]
  16. FONDAPARINUX SODIUM [Concomitant]
  17. FUROSEMIDE [Concomitant]
  18. MORPHINE SULFATE [Concomitant]
  19. ONDANSETRON HYDROCHLORIDE [Concomitant]
  20. ORNITHINE KETOGLUTARATE [Concomitant]
  21. POLYETHYLENE GLYCOL 4000 [Concomitant]
  22. PREDNISONE TAB [Concomitant]

REACTIONS (21)
  - ABDOMINAL PAIN UPPER [None]
  - AGITATION [None]
  - ANXIETY [None]
  - BRONCHOPNEUMONIA [None]
  - CARDIAC FAILURE [None]
  - CONFUSIONAL STATE [None]
  - DECREASED APPETITE [None]
  - FATIGUE [None]
  - GENERAL PHYSICAL HEALTH DETERIORATION [None]
  - HAEMOGLOBIN DECREASED [None]
  - HYPERKALAEMIA [None]
  - HYPERTHERMIA [None]
  - HYPOVOLAEMIA [None]
  - JUGULAR VEIN THROMBOSIS [None]
  - MALIGNANT NEOPLASM PROGRESSION [None]
  - MEDICAL DEVICE COMPLICATION [None]
  - NEUTROPENIA [None]
  - NON-SMALL CELL LUNG CANCER [None]
  - PHLEBITIS [None]
  - THROMBOCYTOPENIA [None]
  - WEIGHT DECREASED [None]
